FAERS Safety Report 10206029 (Version 1)
Quarter: 2014Q2

REPORT INFORMATION
  Report Type: Spontaneous
  Country: ES (occurrence: ES)
  Receive Date: 20140530
  Receipt Date: 20140530
  Transmission Date: 20141212
  Serious: Yes (Other)
  Sender: FDA-Public Use
  Company Number: ES-ROCHE-1404608

PATIENT
  Age: 47 Year
  Sex: Male

DRUGS (3)
  1. RIVOTRIL [Suspect]
     Indication: RESTLESS LEGS SYNDROME
     Route: 048
     Dates: start: 201308
  2. ROTIGOTINE [Suspect]
     Indication: RESTLESS LEGS SYNDROME
     Route: 062
     Dates: start: 201307, end: 20140428
  3. CODEINE [Suspect]
     Indication: RESTLESS LEGS SYNDROME
     Route: 048
     Dates: start: 201308

REACTIONS (5)
  - Asthenia [Unknown]
  - Dyspnoea exertional [Unknown]
  - Libido decreased [Unknown]
  - Depressed mood [Unknown]
  - Anxiety [Unknown]
